FAERS Safety Report 18037667 (Version 1)
Quarter: 2020Q3

REPORT INFORMATION
  Report Type: Spontaneous
  Country: US (occurrence: US)
  Receive Date: 20200717
  Receipt Date: 20200717
  Transmission Date: 20201103
  Serious: No
  Sender: FDA-Public Use
  Company Number: US-SA-2020SA184379

PATIENT

DRUGS (7)
  1. NASONEX [Concomitant]
     Active Substance: MOMETASONE FUROATE
  2. MONTELUKAST [Concomitant]
     Active Substance: MONTELUKAST SODIUM
  3. OMEPRAZOLE. [Concomitant]
     Active Substance: OMEPRAZOLE
  4. MAXIDEX [Concomitant]
     Active Substance: DEXAMETHASONE
  5. DUPIXENT [Suspect]
     Active Substance: DUPILUMAB
     Indication: CHRONIC SINUSITIS
     Dosage: 300 MG, QOW
     Route: 058
     Dates: start: 20200208
  6. TURMERIC [CURCUMA LONGA ROOT] [Concomitant]
  7. BREO ELLIPTA [Concomitant]
     Active Substance: FLUTICASONE FUROATE\VILANTEROL TRIFENATATE

REACTIONS (2)
  - Product use in unapproved indication [Unknown]
  - Ear infection [Unknown]

NARRATIVE: CASE EVENT DATE: 20200208
